FAERS Safety Report 8276632-X (Version None)
Quarter: 2012Q2

REPORT INFORMATION
  Report Type: 
  Country: None (occurrence: None)
  Receive Date: 20120412
  Receipt Date: 20120402
  Transmission Date: 20120825
  Serious: Yes (Hospitalization, Other)
  Sender: FDA-Public Use
  Company Number: PHHY2012AU028409

PATIENT
  Sex: Male

DRUGS (5)
  1. QUETIAPINE [Concomitant]
     Dosage: 400 MG, QD
  2. CLOZARIL [Suspect]
     Indication: SCHIZOPHRENIA
     Dosage: 700 MG, UNK
     Dates: start: 19970113, end: 20120303
  3. LORAZEPAM [Concomitant]
     Dosage: 2 MG, TID
  4. VALPROATE SODIUM [Concomitant]
     Dosage: 1000 MG MANE AND 1500 MG NOCTE
  5. VALPROATE SODIUM [Concomitant]
     Dosage: 1500 MG, (500 MG MANE AND 1000 MG NOCTE)

REACTIONS (18)
  - AGGRESSION [None]
  - BLOOD URIC ACID INCREASED [None]
  - TROPONIN T INCREASED [None]
  - MYOCARDITIS [None]
  - BLOOD CREATINE PHOSPHOKINASE INCREASED [None]
  - BLOOD CREATINE PHOSPHOKINASE MB INCREASED [None]
  - ANION GAP INCREASED [None]
  - PARANOIA [None]
  - ALANINE AMINOTRANSFERASE INCREASED [None]
  - PROTEIN TOTAL DECREASED [None]
  - BLOOD LACTATE DEHYDROGENASE INCREASED [None]
  - BLOOD BICARBONATE INCREASED [None]
  - ANTIPSYCHOTIC DRUG LEVEL BELOW THERAPEUTIC [None]
  - ANTIPSYCHOTIC DRUG LEVEL ABOVE THERAPEUTIC [None]
  - BLOOD UREA DECREASED [None]
  - BLOOD CHOLESTEROL INCREASED [None]
  - C-REACTIVE PROTEIN INCREASED [None]
  - BLOOD GLUCOSE INCREASED [None]
